FAERS Safety Report 17894881 (Version 1)
Quarter: 2020Q2

REPORT INFORMATION
  Report Type: Spontaneous
  Country: US (occurrence: US)
  Receive Date: 20200613
  Receipt Date: 20200613
  Transmission Date: 20200714
  Serious: Yes (Death, Life-Threatening, Hospitalization)
  Sender: FDA-Public Use
  Company Number: None

PATIENT
  Age: 63 Year
  Sex: Male
  Weight: 114.75 kg

DRUGS (5)
  1. OXYGEN. [Concomitant]
     Active Substance: OXYGEN
  2. AMIODERONE [Concomitant]
     Active Substance: AMIODARONE
  3. KEYTRUDA [Suspect]
     Active Substance: PEMBROLIZUMAB
     Indication: RENAL CELL CARCINOMA
     Dosage: ?          OTHER FREQUENCY:TRI WEEKLY;?
     Route: 042
     Dates: start: 20200206, end: 20200406
  4. COREG [Concomitant]
     Active Substance: CARVEDILOL
  5. INLYTA [Concomitant]
     Active Substance: AXITINIB

REACTIONS (3)
  - Oxygen saturation decreased [None]
  - Lung disorder [None]
  - Computerised tomogram abnormal [None]

NARRATIVE: CASE EVENT DATE: 20200424
